FAERS Safety Report 24281058 (Version 4)
Quarter: 2024Q4

REPORT INFORMATION
  Report Type: Spontaneous
  Country: JP (occurrence: JP)
  Receive Date: 20240904
  Receipt Date: 20241016
  Transmission Date: 20250115
  Serious: Yes (Life-Threatening, Hospitalization, Other)
  Sender: PFIZER
  Company Number: JP-MLMSERVICE-20240729-PI145404-00029-3

PATIENT
  Age: 19 Year
  Sex: Female
  Weight: 41 kg

DRUGS (3)
  1. TRIAZOLAM [Suspect]
     Active Substance: TRIAZOLAM
     Indication: Anxiety disorder
     Dosage: DOSES WAS EXCEEDED
     Route: 048
  2. BROTIZOLAM [Suspect]
     Active Substance: BROTIZOLAM
     Indication: Anxiety disorder
     Dosage: DOSES WAS EXCEEDED
     Route: 048
  3. ACETAMINOPHEN [Suspect]
     Active Substance: ACETAMINOPHEN
     Dosage: 25000 MG, SINGLE
     Route: 048
     Dates: start: 202312, end: 202312

REACTIONS (9)
  - Intentional product misuse [Recovering/Resolving]
  - Intentional overdose [Recovering/Resolving]
  - Acute hepatic failure [Not Recovered/Not Resolved]
  - Ventricular fibrillation [Recovered/Resolved]
  - Hepatic encephalopathy [Recovered/Resolved]
  - Electrocardiogram QT prolonged [Recovering/Resolving]
  - Metabolic acidosis [Recovering/Resolving]
  - Torsade de pointes [Recovered/Resolved]
  - Coagulopathy [Recovering/Resolving]

NARRATIVE: CASE EVENT DATE: 20231201
